FAERS Safety Report 4561875-9 (Version None)
Quarter: 2005Q1

REPORT INFORMATION
  Report Type: 
  Country: None (occurrence: None)
  Receive Date: 20050126
  Receipt Date: 20041016
  Transmission Date: 20050727
  Serious: Yes (Hospitalization, Disabling)
  Sender: FDA-Public Use
  Company Number: DE-MERCK-0410DEU00513

PATIENT
  Age: 52 Year
  Sex: Female

DRUGS (9)
  1. VIOXX [Suspect]
     Indication: ARTHRALGIA
     Route: 048
     Dates: start: 20010601
  2. TRAMADOL HCL [Suspect]
     Indication: BACK PAIN
     Route: 048
     Dates: start: 20010924
  3. BETAHISTINE MESYLATE [Concomitant]
     Route: 065
  4. ATORVASTATIN CALCIUM [Concomitant]
     Route: 048
  5. CANDESARTAN CILEXETIL [Concomitant]
     Route: 048
  6. ASPIRIN [Concomitant]
     Route: 048
  7. HYDROXYCHLOROQUINE SULFATE [Suspect]
     Indication: SYSTEMIC LUPUS ERYTHEMATOSUS
     Route: 048
     Dates: start: 20020501
  8. CHLOROQUINE PHOSPHATE [Suspect]
     Indication: SYSTEMIC LUPUS ERYTHEMATOSUS
     Route: 048
     Dates: start: 20010128, end: 20020501
  9. CEFTRIAXZONE SODIUM [Suspect]
     Indication: BORRELIA INFECTION
     Route: 065
     Dates: start: 20030101

REACTIONS (4)
  - BORRELIA INFECTION [None]
  - HYPERTENSION [None]
  - LEUKOENCEPHALOMYELITIS [None]
  - MENIERE'S DISEASE [None]
